FAERS Safety Report 20726714 (Version 1)
Quarter: 2022Q2

REPORT INFORMATION
  Report Type: Spontaneous
  Country: US (occurrence: US)
  Receive Date: 20220419
  Receipt Date: 20220419
  Transmission Date: 20220721
  Serious: Yes (Other)
  Sender: FDA-Public Use
  Company Number: US-PFIZER INC-202200533083

PATIENT
  Age: 68 Year
  Sex: Male

DRUGS (1)
  1. INLYTA [Suspect]
     Active Substance: AXITINIB
     Dosage: 5 MG, 2X/DAY [EVERY 12 HOURS]
     Route: 048
     Dates: start: 20220304

REACTIONS (2)
  - Blood glucose increased [Unknown]
  - Rash [Unknown]

NARRATIVE: CASE EVENT DATE: 20220101
